FAERS Safety Report 4704584-5 (Version None)
Quarter: 2005Q2

REPORT INFORMATION
  Report Type: 
  Country: None (occurrence: None)
  Receive Date: 20050629
  Receipt Date: 20050622
  Transmission Date: 20051028
  Serious: Yes (Hospitalization, Other)
  Sender: FDA-Public Use
  Company Number: 2005079195

PATIENT
  Age: 71 Year
  Sex: Male
  Weight: 73 kg

DRUGS (4)
  1. TAHOR            (ATORVASTATIN) [Suspect]
     Indication: HYPOLIPIDAEMIA
     Dosage: 10 MG (10 MG, DAILY), ORAL
     Route: 048
     Dates: end: 20050520
  2. DIGOXIN [Concomitant]
  3. FLUINDIONE (FLUINDIONE) [Concomitant]
  4. ALL OTHER THERAPEUTIC PRODUCTS [Concomitant]

REACTIONS (9)
  - ARTHRALGIA [None]
  - ATRIAL FIBRILLATION [None]
  - DEAFNESS UNILATERAL [None]
  - EPISTAXIS [None]
  - MYALGIA [None]
  - PAIN [None]
  - PATELLA FRACTURE [None]
  - PRURITUS [None]
  - TENDON DISORDER [None]
